FAERS Safety Report 22023501 (Version 2)
Quarter: 2023Q2

REPORT INFORMATION
  Report Type: Spontaneous
  Country: US (occurrence: US)
  Receive Date: 20230223
  Receipt Date: 20230601
  Transmission Date: 20230722
  Serious: No
  Sender: FDA-Public Use
  Company Number: US-BRISTOL-MYERS SQUIBB COMPANY-2023-026665

PATIENT
  Age: 40 Year
  Sex: Male
  Weight: 67 kg

DRUGS (1)
  1. NULOJIX [Suspect]
     Active Substance: BELATACEPT
     Indication: Renal transplant
     Dosage: DOSE : UNKNOWN;     FREQ : OVER 30 MINS EVERY 28 DAYS.
     Route: 042
     Dates: start: 20171030

REACTIONS (1)
  - Epstein-Barr virus infection [Unknown]

NARRATIVE: CASE EVENT DATE: 20230221
